FAERS Safety Report 8345480 (Version 2)
Quarter: 2012Q4

REPORT INFORMATION
  Report Type: 
  Country: US (occurrence: US)
  Receive Date: 20120120
  Receipt Date: 20121019
  Transmission Date: 20130627
  Serious: Yes (Other)
  Sender: FDA-Public Use
  Company Number: US-BRISTOL-MYERS SQUIBB COMPANY-16130163

PATIENT
  Age: 48 Year
  Sex: Female
  Weight: 83 kg

DRUGS (9)
  1. YERVOY [Suspect]
     Indication: METASTATIC MALIGNANT MELANOMA
     Dosage: Therapy dates:02Sep11,22Sep11,08nov2011,29Nov2011
10Mg/kg-2 treatments
     Route: 042
     Dates: start: 20110902
  2. PREDNISONE [Concomitant]
     Dosage: 70mg/d, 7.5mg/d
  3. SYNTHROID [Concomitant]
  4. AMBIEN [Concomitant]
     Dosage: night
  5. ATIVAN [Concomitant]
     Indication: ANXIETY
     Dosage: every 6h
  6. CELEXA [Concomitant]
  7. VALTREX [Concomitant]
  8. OMEPRAZOLE [Concomitant]
  9. LEVORA [Concomitant]
     Indication: CONTRACEPTION

REACTIONS (2)
  - Lymphocytic hypophysitis [Recovered/Resolved]
  - Uveitis [Unknown]
